FAERS Safety Report 9448117 (Version 1)
Quarter: 2013Q3

REPORT INFORMATION
  Report Type: Spontaneous
  Country: US (occurrence: None)
  Receive Date: 20130807
  Receipt Date: 20130807
  Transmission Date: 20140515
  Serious: No
  Sender: FDA-Public Use
  Company Number: None

PATIENT
  Age: 44 Year
  Sex: Female
  Weight: 63.5 kg

DRUGS (1)
  1. VALACYCLOVIR\VALACYCLOVIR HYDROCHLORIDE [Suspect]
     Indication: HERPES SIMPLEX
     Dosage: 2MG QD ORAL
     Route: 048
     Dates: start: 20130403, end: 20130407

REACTIONS (5)
  - Paraesthesia [None]
  - Facial neuralgia [None]
  - Neuralgia [None]
  - Dyspnoea [None]
  - Economic problem [None]
